FAERS Safety Report 4642230-X (Version None)
Quarter: 2005Q2

REPORT INFORMATION
  Report Type: 
  Country: None (occurrence: None)
  Receive Date: 20050422
  Receipt Date: 20050118
  Transmission Date: 20051028
  Serious: Yes (Other)
  Sender: FDA-Public Use
  Company Number: US-BRISTOL-MYERS SQUIBB COMPANY-12828158

PATIENT
  Age: 79 Year
  Sex: Female
  Weight: 68 kg

DRUGS (9)
  1. ERBITUX [Suspect]
     Indication: COLORECTAL CANCER
     Route: 042
     Dates: start: 20041124
  2. BENADRYL [Concomitant]
     Indication: PREMEDICATION
     Dates: start: 20041124
  3. IRINOTECAN HCL [Concomitant]
     Dates: end: 20040729
  4. IRINOTECAN HCL [Concomitant]
     Dates: end: 20040729
  5. PROCRIT [Concomitant]
     Dosage: 60,000 UNITS.
  6. DIOVAN HCT [Concomitant]
     Dosage: 160-30.
  7. TOPROL-XL [Concomitant]
  8. COUMADIN [Concomitant]
  9. LEXAPRO [Concomitant]

REACTIONS (3)
  - CARDIAC FAILURE CONGESTIVE [None]
  - CARDIOMEGALY [None]
  - OEDEMA PERIPHERAL [None]
